FAERS Safety Report 10560690 (Version 2)
Quarter: 2014Q4

REPORT INFORMATION
  Report Type: Spontaneous
  Country: US (occurrence: US)
  Receive Date: 20141103
  Receipt Date: 20141218
  Transmission Date: 20150529
  Serious: No
  Sender: FDA-Public Use
  Company Number: US-PFIZER INC-2014299634

PATIENT
  Age: 69 Year
  Sex: Female

DRUGS (7)
  1. TRAMADOL [Concomitant]
     Active Substance: TRAMADOL
     Dosage: UNK
  2. LYRICA [Suspect]
     Active Substance: PREGABALIN
     Indication: RESTLESS LEGS SYNDROME
  3. ACEBUTOLOL [Concomitant]
     Active Substance: ACEBUTOLOL
     Dosage: UNK
  4. L-THYROXINE [Concomitant]
     Active Substance: LEVOTHYROXINE
     Dosage: UNK
  5. LYRICA [Suspect]
     Active Substance: PREGABALIN
     Indication: FIBROMYALGIA
  6. TRIAMTERENE. [Concomitant]
     Active Substance: TRIAMTERENE
     Dosage: UNK
  7. LYRICA [Suspect]
     Active Substance: PREGABALIN
     Indication: PAIN IN EXTREMITY
     Dosage: UNK
     Dates: start: 20141028, end: 20141030

REACTIONS (6)
  - Muscle spasms [Recovered/Resolved]
  - Drug effect decreased [Recovered/Resolved]
  - Dysstasia [Recovered/Resolved]
  - Osteoarthritis [Recovered/Resolved]
  - Feeling drunk [Recovered/Resolved]
  - Pain [Recovered/Resolved]
